FAERS Safety Report 19057956 (Version 1)
Quarter: 2021Q1

REPORT INFORMATION
  Report Type: Spontaneous
  Country: JP (occurrence: JP)
  Receive Date: 20210324
  Receipt Date: 20210324
  Transmission Date: 20210420
  Serious: Yes (Hospitalization)
  Sender: FDA-Public Use
  Company Number: JP-MYOVANT SCIENCES IRELAND LIMITED-2021MYSCI0300132

PATIENT
  Age: 47 Year
  Sex: Female

DRUGS (1)
  1. RELUMINA [Suspect]
     Active Substance: RELUGOLIX
     Indication: UTERINE LEIOMYOMA
     Dosage: 40 MILLIGRAM
     Route: 048

REACTIONS (1)
  - Metrorrhagia [Recovered/Resolved]
